FAERS Safety Report 14836681 (Version 1)
Quarter: 2018Q2

REPORT INFORMATION
  Report Type: Spontaneous
  Country: US (occurrence: US)
  Receive Date: 20180502
  Receipt Date: 20180502
  Transmission Date: 20180711
  Serious: Yes (Hospitalization, Other)
  Sender: FDA-Public Use
  Company Number: US-BAYER-2018-078198

PATIENT
  Age: 81 Year
  Sex: Female

DRUGS (5)
  1. HYDRALAZINE [Concomitant]
     Active Substance: HYDRALAZINE HYDROCHLORIDE
  2. LOSARTAN. [Concomitant]
     Active Substance: LOSARTAN
  3. AMLODIPINE [Concomitant]
     Active Substance: AMLODIPINE BESYLATE
  4. INSULIN [Concomitant]
     Active Substance: INSULIN NOS
  5. REGORAFENIB. [Suspect]
     Active Substance: REGORAFENIB

REACTIONS (5)
  - Dyspnoea [None]
  - Focal segmental glomerulosclerosis [None]
  - Tubulointerstitial nephritis [None]
  - Palpitations [None]
  - Glomerulonephritis membranoproliferative [None]
